FAERS Safety Report 15050195 (Version 1)
Quarter: 2018Q2

REPORT INFORMATION
  Report Type: Spontaneous
  Country: US (occurrence: US)
  Receive Date: 20180622
  Receipt Date: 20180622
  Transmission Date: 20180711
  Serious: Yes (Death)
  Sender: FDA-Public Use
  Company Number: PHHY2018US026833

PATIENT
  Age: 54 Year
  Sex: Female

DRUGS (1)
  1. ZYKADIA [Suspect]
     Active Substance: CERITINIB
     Indication: SMALL INTESTINE ADENOCARCINOMA
     Route: 065

REACTIONS (2)
  - Gastrointestinal toxicity [Fatal]
  - Product use in unapproved indication [Unknown]
